FAERS Safety Report 5795416-5 (Version None)
Quarter: 2008Q2

REPORT INFORMATION
  Report Type: 
  Country: None (occurrence: None)
  Receive Date: 20080626
  Receipt Date: 20080611
  Transmission Date: 20081010
  Serious: Yes (Death)
  Sender: FDA-Public Use
  Company Number: 2008AL005387

PATIENT
  Age: 68 Year
  Sex: Male
  Weight: 75.7507 kg

DRUGS (3)
  1. DIGOXIN [Suspect]
     Indication: ATRIAL FIBRILLATION
     Dosage: 0.125MG DAILY PO
     Route: 048
     Dates: end: 20080630
  2. COUMADIN [Concomitant]
  3. INSULIN [Concomitant]

REACTIONS (4)
  - BALANCE DISORDER [None]
  - CARDIAC FAILURE [None]
  - DIZZINESS [None]
  - RENAL FAILURE [None]
